FAERS Safety Report 5710510-2 (Version None)
Quarter: 2008Q2

REPORT INFORMATION
  Report Type: 
  Country: None (occurrence: None)
  Receive Date: 20080415
  Receipt Date: 20080404
  Transmission Date: 20081010
  Serious: Yes (Other)
  Sender: FDA-Public Use
  Company Number: 46998

PATIENT
  Age: 9 Month
  Sex: Female

DRUGS (2)
  1. CARBOPLATIN [Suspect]
     Indication: RETINOBLASTOMA
     Dosage: 140MG IV
     Route: 042
     Dates: start: 20080403
  2. ETOPOSIDE [Suspect]
     Dosage: 60MG IV
     Route: 042
     Dates: start: 20080403

REACTIONS (4)
  - DRUG DISPENSING ERROR [None]
  - INCORRECT DOSE ADMINISTERED [None]
  - INCORRECT DRUG ADMINISTRATION DURATION [None]
  - MEDICATION ERROR [None]
